FAERS Safety Report 4264028-7 (Version None)
Quarter: 2004Q1

REPORT INFORMATION
  Report Type: 
  Country: None (occurrence: None)
  Receive Date: 20040102
  Receipt Date: 20031216
  Transmission Date: 20041129
  Serious: Yes (Hospitalization)
  Sender: FDA-Public Use
  Company Number: GBT031201111

PATIENT
  Age: 43 Year
  Sex: Female
  Weight: 71 kg

DRUGS (4)
  1. GEMZAR [Suspect]
     Indication: BREAST CANCER
  2. PACLITAXEL [Suspect]
     Indication: BREAST CANCER
  3. EPIRUBICIN [Suspect]
     Indication: BREAST CANCER
     Dosage: 158 MG/OTHER
     Dates: end: 20030930
  4. CYCLOPHOSPHAMIDE [Suspect]
     Indication: BREAST CANCER
     Dosage: 1050 MG/OTHER
     Dates: end: 20030930

REACTIONS (4)
  - CHEST WALL PAIN [None]
  - DYSPHAGIA [None]
  - LYMPHANGITIS [None]
  - LYMPHOEDEMA [None]
